FAERS Safety Report 8497662 (Version 5)
Quarter: 2012Q4

REPORT INFORMATION
  Report Type: Report from Study
  Country: CA (occurrence: CA)
  Receive Date: 20120406
  Receipt Date: 20121004
  Transmission Date: 20130627
  Serious: Yes (Hospitalization)
  Sender: FDA-Public Use
  Company Number: CA-ROCHE-1052543

PATIENT
  Sex: Female
  Weight: 69.92 kg

DRUGS (9)
  1. ROACTEMRA [Suspect]
     Indication: RHEUMATOID ARTHRITIS
     Route: 042
     Dates: start: 20111117, end: 20111214
  2. ROACTEMRA [Suspect]
     Dosage: DOSE DECREASED
     Route: 065
     Dates: start: 20120921
  3. SULFASALAZINE [Concomitant]
  4. CALCIUM [Concomitant]
  5. PLAQUENIL [Concomitant]
  6. PANTOLOC [Concomitant]
  7. NAPROXEN [Concomitant]
  8. RISEDRONATE [Concomitant]
  9. PREDNISONE [Concomitant]

REACTIONS (4)
  - Osteonecrosis [Recovering/Resolving]
  - Blister [Recovered/Resolved]
  - Blister [Recovered/Resolved]
  - Tooth infection [Recovered/Resolved]
